FAERS Safety Report 23124963 (Version 1)
Quarter: 2023Q4

REPORT INFORMATION
  Report Type: Report from Study
  Country: US (occurrence: US)
  Receive Date: 20231030
  Receipt Date: 20231030
  Transmission Date: 20240110
  Serious: No
  Sender: FDA-Public Use
  Company Number: US-ASTELLAS-2023US032005

PATIENT
  Sex: Female

DRUGS (2)
  1. FEZOLINETANT [Suspect]
     Active Substance: FEZOLINETANT
     Indication: Product used for unknown indication
     Route: 065
  2. FEZOLINETANT [Suspect]
     Active Substance: FEZOLINETANT
     Route: 065
     Dates: end: 20231022

REACTIONS (1)
  - Hepatic enzyme increased [Unknown]
